FAERS Safety Report 8523807-8 (Version None)
Quarter: 2012Q3

REPORT INFORMATION
  Report Type: 
  Country: None (occurrence: None)
  Receive Date: 20120720
  Receipt Date: 20120713
  Transmission Date: 20120928
  Serious: Yes (Hospitalization)
  Sender: FDA-Public Use
  Company Number: US-JNJFOC-20120604806

PATIENT
  Age: 28 Year
  Sex: Female
  Weight: 62.4 kg

DRUGS (2)
  1. ACETAMINOPHEN [Suspect]
     Route: 048
  2. ACETAMINOPHEN [Suspect]
     Indication: PAIN
     Route: 048
     Dates: start: 20120601, end: 20120601

REACTIONS (6)
  - RENAL FAILURE ACUTE [None]
  - OVERDOSE [None]
  - HYPERBILIRUBINAEMIA [None]
  - TRANSAMINASES INCREASED [None]
  - VOMITING [None]
  - ABDOMINAL PAIN [None]
